FAERS Safety Report 10067335 (Version 1)
Quarter: 2014Q2

REPORT INFORMATION
  Report Type: Spontaneous
  Country: US (occurrence: None)
  Receive Date: 20140408
  Receipt Date: 20140408
  Transmission Date: 20141212
  Serious: Yes (Other)
  Sender: FDA-Public Use
  Company Number: None

PATIENT
  Age: 21 Year
  Sex: Female

DRUGS (1)
  1. MAKENA [Suspect]
     Indication: PREMATURE LABOUR
     Route: 030
     Dates: start: 20140211, end: 20140404

REACTIONS (2)
  - Hypersensitivity [None]
  - Injection site reaction [None]
